FAERS Safety Report 4872866-2 (Version None)
Quarter: 2006Q1

REPORT INFORMATION
  Report Type: 
  Country: None (occurrence: None)
  Receive Date: 20060105
  Receipt Date: 20021018
  Transmission Date: 20060701
  Serious: No
  Sender: FDA-Public Use
  Company Number: US-BRISTOL-MYERS SQUIBB COMPANY-12083432

PATIENT
  Age: 51 Year
  Sex: Female
  Weight: 65 kg

DRUGS (17)
  1. SERZONE [Suspect]
     Indication: PAIN
     Dosage: 75MG IN AM + 150MG IN PM FOR ^THREE YEARS^
     Route: 048
  2. LEVSIN [Concomitant]
  3. TRANXENE [Concomitant]
  4. LASIX [Concomitant]
  5. K-DUR 10 [Concomitant]
  6. NEURONTIN [Concomitant]
  7. CELEBREX [Concomitant]
  8. TYLOX [Concomitant]
  9. NITROSTAT [Concomitant]
  10. ASPIRIN [Concomitant]
  11. WELCHOL [Concomitant]
  12. TRICOR [Concomitant]
  13. ARICEPT [Concomitant]
  14. ZANTAC [Concomitant]
  15. OS-CAL [Concomitant]
  16. VITAMIN D [Concomitant]
  17. MACROBID [Concomitant]

REACTIONS (1)
  - DIARRHOEA [None]
